FAERS Safety Report 8009476-4 (Version None)
Quarter: 2011Q4

REPORT INFORMATION
  Report Type: 
  Country: None (occurrence: None)
  Receive Date: 20111227
  Receipt Date: 20111220
  Transmission Date: 20120403
  Serious: Yes (Hospitalization)
  Sender: FDA-Public Use
  Company Number: US-SANOFI-AVENTIS-2011SA084130

PATIENT
  Sex: Female

DRUGS (3)
  1. COUMADIN [Concomitant]
     Dates: start: 20080101
  2. LANTUS [Suspect]
     Route: 058
  3. LOVENOX [Concomitant]

REACTIONS (3)
  - BLOOD GLUCOSE INCREASED [None]
  - CEREBROVASCULAR ACCIDENT [None]
  - INFLUENZA [None]
